FAERS Safety Report 12130420 (Version 1)
Quarter: 2016Q1

REPORT INFORMATION
  Report Type: Spontaneous
  Country: US (occurrence: None)
  Receive Date: 20160229
  Receipt Date: 20160229
  Transmission Date: 20160526
  Serious: Yes (Other)
  Sender: FDA-Public Use
  Company Number: None

PATIENT
  Age: 53 Year
  Sex: Female
  Weight: 70.76 kg

DRUGS (1)
  1. OTEZLA [Suspect]
     Active Substance: APREMILAST
     Indication: ANKYLOSING SPONDYLITIS

REACTIONS (5)
  - Vomiting [None]
  - Tendon pain [None]
  - Ligament pain [None]
  - Influenza like illness [None]
  - Diarrhoea [None]

NARRATIVE: CASE EVENT DATE: 20160222
